FAERS Safety Report 11627008 (Version 1)
Quarter: 2015Q4

REPORT INFORMATION
  Report Type: Spontaneous
  Country: US (occurrence: US)
  Receive Date: 20151013
  Receipt Date: 20151013
  Transmission Date: 20160304
  Serious: No
  Sender: FDA-Public Use
  Company Number: US-INDIVIOR-RB-074886-2015

PATIENT
  Age: 53 Year
  Sex: Female

DRUGS (3)
  1. SUBOXONE [Suspect]
     Active Substance: BUPRENORPHINE HYDROCHLORIDE\NALOXONE HYDROCHLORIDE
     Indication: DRUG DEPENDENCE
     Dosage: TOOK 8MG AND THEN WAS GIVEN ANOTHER 8MG
     Route: 060
     Dates: start: 201501, end: 201501
  2. XANAX [Concomitant]
     Active Substance: ALPRAZOLAM
     Indication: POST-TRAUMATIC STRESS DISORDER
  3. XANAX [Concomitant]
     Active Substance: ALPRAZOLAM
     Indication: ANXIETY
     Dosage: 2 MG, QID
     Route: 048

REACTIONS (5)
  - Impaired driving ability [Recovered/Resolved]
  - Nausea [Recovered/Resolved]
  - Respiratory rate decreased [Recovered/Resolved]
  - Slow speech [Recovered/Resolved]
  - Malaise [Recovered/Resolved]

NARRATIVE: CASE EVENT DATE: 201501
